FAERS Safety Report 5795494-3 (Version None)
Quarter: 2008Q2

REPORT INFORMATION
  Report Type: 
  Country: None (occurrence: None)
  Receive Date: 20080601
  Receipt Date: 20080121
  Transmission Date: 20081010
  Serious: No
  Sender: FDA-Public Use
  Company Number: US200801004623

PATIENT
  Age: 61 Year
  Sex: Female
  Weight: 105 kg

DRUGS (6)
  1. BYETTA [Suspect]
     Indication: TYPE 2 DIABETES MELLITUS
     Dosage: 5 UG, 2/D, SUBCUTANEOUS ; 10 UG, 2/D, SUBCUTANEOUS
     Route: 058
     Dates: start: 20050101, end: 20050101
  2. BYETTA [Suspect]
     Indication: TYPE 2 DIABETES MELLITUS
     Dosage: 5 UG, 2/D, SUBCUTANEOUS ; 10 UG, 2/D, SUBCUTANEOUS
     Route: 058
     Dates: start: 20050101
  3. EXENATIDE PEN, DISPOSABLE [Concomitant]
  4. GLYBURIDE [Concomitant]
  5. NEURONTIN [Concomitant]
  6. RELAFEN [Concomitant]

REACTIONS (12)
  - AGITATION [None]
  - ANXIETY [None]
  - CARPAL TUNNEL SYNDROME [None]
  - FIBROMYALGIA [None]
  - INJECTION SITE PRURITUS [None]
  - MEMORY IMPAIRMENT [None]
  - NEUROPATHY PERIPHERAL [None]
  - POLYARTHRITIS [None]
  - THINKING ABNORMAL [None]
  - TREMOR [None]
  - URTICARIA [None]
  - WEIGHT DECREASED [None]
